FAERS Safety Report 9311844 (Version 3)
Quarter: 2013Q3

REPORT INFORMATION
  Report Type: Spontaneous
  Country: JP (occurrence: JP)
  Receive Date: 20130528
  Receipt Date: 20130703
  Transmission Date: 20140515
  Serious: Yes (Other)
  Sender: FDA-Public Use
  Company Number: PHHY2013JP051676

PATIENT
  Age: 60 Year
  Sex: Female
  Weight: 50.9 kg

DRUGS (10)
  1. OXALIPLATIN [Suspect]
     Dosage: 100 MG/M2 ON DAY 1
     Route: 042
     Dates: end: 200707
  2. FOLINIC ACID [Suspect]
     Dosage: 180 MG/M2 ON DAY 1
     Route: 042
     Dates: end: 200707
  3. FOLINIC ACID [Suspect]
     Dosage: 180 MG/M2, UNK
     Route: 042
     Dates: start: 200708, end: 200804
  4. 5-FLUOROURACIL [Suspect]
     Dosage: 280 MG/M2 BOLUS ON DAY 1
     Route: 040
  5. 5-FLUOROURACIL [Suspect]
     Dosage: CONTINUOUS ADMINISTRATION FOR 46 HOURS OF FLUOROURACIL 1800 MG/M2 ON DAYS 1-3
  6. 5-FLUOROURACIL [Suspect]
     Dosage: 210 MG/M2, UNK
     Route: 040
  7. 5-FLUOROURACIL [Suspect]
     Dosage: 1400 MG/M2, CONTINUOUS 46-HOUR INFUSION (DAYS 1-3)
     Dates: end: 200707
  8. 5-FLUOROURACIL [Suspect]
     Dosage: 210 MG/M2, UNK
     Route: 040
     Dates: start: 200708
  9. 5-FLUOROURACIL [Suspect]
     Dosage: 1400 MG/M2, CONTINUOUS 46-HOUR ADMINISTRATION (DAYS 1-3)
     Dates: end: 200804
  10. IRINOTECAN [Concomitant]
     Dosage: 11100 MG/M2, UNK
     Dates: start: 200708, end: 200804

REACTIONS (3)
  - Neuropathy peripheral [Unknown]
  - Blood disorder [Unknown]
  - Neutrophil count abnormal [Unknown]
